FAERS Safety Report 22046299 (Version 1)
Quarter: 2023Q1

REPORT INFORMATION
  Report Type: Spontaneous
  Country: CH (occurrence: CH)
  Receive Date: 20230228
  Receipt Date: 20230228
  Transmission Date: 20230418
  Serious: Yes (Hospitalization)
  Sender: FDA-Public Use
  Company Number: CH-SM-2023-10727

PATIENT
  Age: 76 Year
  Sex: Female
  Weight: 41.5 kg

DRUGS (22)
  1. ACTEMRA [Suspect]
     Active Substance: TOCILIZUMAB
     Indication: Osteomyelitis
     Dosage: MONOTHERAPIE SEIT 2017 - 07/2017-12/2017 SUBKUTAN, BEI FEHLENDEM ANSPRECHEN WECHSEL AUF I.V.-IN...
     Route: 041
     Dates: start: 2018, end: 202208
  2. ACTEMRA [Suspect]
     Active Substance: TOCILIZUMAB
     Dosage: MONOTHERAPIE SEIT 2017 - 07/2017-12/2017 SUBKUTAN, BEI FEHLENDEM ANSPRECHEN WECHSEL AUF I.V.-IN...
     Route: 041
     Dates: start: 20221129, end: 202301
  3. ACTEMRA [Suspect]
     Active Substance: TOCILIZUMAB
     Indication: Rheumatoid arthritis
     Dosage: MONOTHERAPIE SEIT 2017?07/2017-12/2017 SUBKUTAN, BEI FEHLENDEM ANSPRECHEN WECHSEL AUF I.V.-IN...
     Route: 058
     Dates: start: 2017, end: 2017
  4. BISOPROLOL FUMARATE [Suspect]
     Active Substance: BISOPROLOL FUMARATE
     Indication: Product used for unknown indication
     Route: 065
     Dates: end: 20230202
  5. COVERAM [Suspect]
     Active Substance: AMLODIPINE\PERINDOPRIL
     Indication: Product used for unknown indication
     Route: 065
     Dates: start: 20221125, end: 20230203
  6. ATORVASTATIN [Suspect]
     Active Substance: ATORVASTATIN
     Indication: Product used for unknown indication
     Route: 065
     Dates: end: 20230202
  7. PANTOPRAZOLE SODIUM [Suspect]
     Active Substance: PANTOPRAZOLE SODIUM
     Indication: Product used for unknown indication
     Route: 065
     Dates: end: 20230125
  8. PANTOPRAZOLE SODIUM [Suspect]
     Active Substance: PANTOPRAZOLE SODIUM
     Route: 065
     Dates: start: 20230131, end: 20230203
  9. PANTOPRAZOLE SODIUM [Suspect]
     Active Substance: PANTOPRAZOLE SODIUM
     Route: 065
     Dates: start: 20230204
  10. ACLASTA [Concomitant]
     Active Substance: ZOLEDRONIC ACID
     Dates: start: 2009
  11. PALEXIA [Concomitant]
     Active Substance: TAPENTADOL HYDROCHLORIDE
     Dosage: PALEXIA (TAPENTADOL) 50MG 1.5-1-1.5-1
  12. PRADAXA [Concomitant]
     Active Substance: DABIGATRAN ETEXILATE MESYLATE
     Dosage: PAUSIERT VOM 27.01. - 29.01.2023 WEGEN COLOSKOPIE
  13. PREDNISONE [Concomitant]
     Active Substance: PREDNISONE
     Dates: end: 20230201
  14. PREDNISONE [Concomitant]
     Active Substance: PREDNISONE
     Dates: start: 20230202
  15. NOVALGIN (METAMIZOLE SODIUM) [Concomitant]
     Active Substance: METAMIZOLE SODIUM
  16. TERIPARATIDE [Concomitant]
     Active Substance: TERIPARATIDE
     Dates: start: 202202
  17. LORAZEPAM [Concomitant]
     Active Substance: LORAZEPAM
  18. BUDESONIDE\FORMOTEROL FUMARATE DIHYDRATE [Concomitant]
     Active Substance: BUDESONIDE\FORMOTEROL FUMARATE DIHYDRATE
     Route: 055
  19. CALCIUM CARBONATE\CHOLECALCIFEROL [Concomitant]
     Active Substance: CALCIUM CARBONATE\CHOLECALCIFEROL
  20. IMODIUM [Concomitant]
     Active Substance: LOPERAMIDE HYDROCHLORIDE
     Dates: start: 20230103, end: 20230131
  21. IMODIUM [Concomitant]
     Active Substance: LOPERAMIDE HYDROCHLORIDE
     Dates: start: 20230201, end: 20230205
  22. IMODIUM [Concomitant]
     Active Substance: LOPERAMIDE HYDROCHLORIDE
     Dates: start: 20230206

REACTIONS (2)
  - Colitis microscopic [Not Recovered/Not Resolved]
  - Diarrhoea [Not Recovered/Not Resolved]

NARRATIVE: CASE EVENT DATE: 20230103
